FAERS Safety Report 11854452 (Version 1)
Quarter: 2015Q4

REPORT INFORMATION
  Report Type: Spontaneous
  Country: DE (occurrence: DE)
  Receive Date: 20151221
  Receipt Date: 20151221
  Transmission Date: 20160305
  Serious: Yes (Congenital Anomaly)
  Sender: FDA-Public Use
  Company Number: GXKR2015DE005459

PATIENT

DRUGS (5)
  1. L-THYROXINE//LEVOTHYROXINE [Concomitant]
     Indication: HYPOTHYROIDISM
     Dosage: 75 [?G/D ] (GW 7.4 TO 37.6)
     Route: 064
  2. ACTRAPID [Concomitant]
     Active Substance: INSULIN HUMAN
     Indication: GESTATIONAL DIABETES
     Route: 064
  3. FOLIO FORTE [Concomitant]
     Active Substance: FOLIC ACID\VITAMINS
     Indication: PROPHYLAXIS OF NEURAL TUBE DEFECT
     Dosage: 0.8 [MG/D (BIS 0.4) ] (GW 11.6 TO 37.6)
     Route: 064
  4. CITALOPRAM [Suspect]
     Active Substance: CITALOPRAM HYDROBROMIDE
     Indication: DEPRESSION
     Dosage: 20 [MG/D ]/ TILL WEEK 32 20 MG/D, THEN REDUCTION
     Route: 064
     Dates: start: 20141023, end: 20150715
  5. AMITRIPTYLINE [Suspect]
     Active Substance: AMITRIPTYLINE
     Indication: DEPRESSION
     Dosage: 75 [MG/D ]
     Route: 064
     Dates: start: 20141023, end: 20150715

REACTIONS (1)
  - Congenital central nervous system anomaly [Not Recovered/Not Resolved]
